FAERS Safety Report 5679616-0 (Version None)
Quarter: 2008Q1

REPORT INFORMATION
  Report Type: 
  Country: None (occurrence: None)
  Receive Date: 20080325
  Receipt Date: 20080313
  Transmission Date: 20080703
  Serious: Yes (Other)
  Sender: FDA-Public Use
  Company Number: CA-PFIZER INC-2008025494

PATIENT
  Age: 80 Year
  Sex: Female

DRUGS (1)
  1. DILANTIN [Suspect]
     Indication: PETIT MAL EPILEPSY

REACTIONS (4)
  - ANTICONVULSANT DRUG LEVEL INCREASED [None]
  - FLUID REPLACEMENT [None]
  - OVERDOSE [None]
  - SOMNOLENCE [None]
